FAERS Safety Report 6519891-3 (Version None)
Quarter: 2009Q4

REPORT INFORMATION
  Report Type: 
  Country: None (occurrence: None)
  Receive Date: 20091229
  Receipt Date: 20091216
  Transmission Date: 20100525
  Serious: Yes (Other)
  Sender: FDA-Public Use
  Company Number: US-JNJCH-2009032904

PATIENT
  Age: 41 Year
  Sex: Female

DRUGS (1)
  1. DEXTROMETHORPHAN [Suspect]
     Indication: DRUG USE FOR UNKNOWN INDICATION
     Dosage: TEXT:720MG OVER 36 HOURS
     Route: 048

REACTIONS (10)
  - ATELECTASIS [None]
  - COUGH [None]
  - DYSPNOEA [None]
  - HYPERTENSION [None]
  - LETHARGY [None]
  - MIOSIS [None]
  - RESPIRATION ABNORMAL [None]
  - TACHYCARDIA [None]
  - TACHYPNOEA [None]
  - WHEEZING [None]
